FAERS Safety Report 9209056 (Version 1)
Quarter: 2013Q2

REPORT INFORMATION
  Report Type: Spontaneous
  Country: US (occurrence: None)
  Receive Date: 20130403
  Receipt Date: 20130403
  Transmission Date: 20140414
  Serious: Yes (Death, Life-Threatening, Hospitalization, Other)
  Sender: FDA-Public Use
  Company Number: None

PATIENT
  Age: 77 Year
  Sex: Male
  Weight: 90.72 kg

DRUGS (1)
  1. PRADAXA 75MG? BOEHRINGER INGELHEIM [Suspect]
     Indication: MYOCARDIAL INFARCTION
     Dosage: 1 CAPSULE
     Route: 048
     Dates: start: 20110623, end: 20120624

REACTIONS (11)
  - Weight decreased [None]
  - Fall [None]
  - Heart rate increased [None]
  - Intestinal haemorrhage [None]
  - Mouth haemorrhage [None]
  - Skin haemorrhage [None]
  - Impaired healing [None]
  - Wound haemorrhage [None]
  - Asthenia [None]
  - Faecal incontinence [None]
  - Urinary incontinence [None]
